FAERS Safety Report 21391058 (Version 1)
Quarter: 2022Q3

REPORT INFORMATION
  Report Type: Spontaneous
  Country: DE (occurrence: DE)
  Receive Date: 20220929
  Receipt Date: 20220929
  Transmission Date: 20221026
  Serious: Yes (Hospitalization)
  Sender: FDA-Public Use
  Company Number: DE-ADRED-07888-01

PATIENT
  Age: 20 Year
  Sex: Male
  Weight: 74 kg

DRUGS (1)
  1. MESALAMINE [Suspect]
     Active Substance: MESALAMINE
     Indication: Product used for unknown indication
     Dosage: 4000 MILLIGRAM, QD
     Route: 054

REACTIONS (3)
  - Pyrexia [Unknown]
  - Acute kidney injury [Unknown]
  - Pain [Unknown]
